FAERS Safety Report 15076614 (Version 1)
Quarter: 2018Q2

REPORT INFORMATION
  Report Type: Spontaneous
  Country: FR (occurrence: FR)
  Receive Date: 20180627
  Receipt Date: 20180627
  Transmission Date: 20180711
  Serious: Yes (Other)
  Sender: FDA-Public Use
  Company Number: FR-PFIZER INC-2018244185

PATIENT
  Age: 65 Year
  Sex: Male

DRUGS (3)
  1. ATRACURIUM BESILATE [Suspect]
     Active Substance: ATRACURIUM BESYLATE
     Indication: ANAESTHESIA
     Dosage: UNK
     Route: 042
     Dates: start: 20180613, end: 201806
  2. PROPOFOL B. BRAUN [Concomitant]
     Active Substance: PROPOFOL
     Indication: ANAESTHESIA
     Dosage: UNK
     Dates: start: 20180613
  3. SUFENTANIL MYLAN [Concomitant]
     Active Substance: SUFENTANIL
     Indication: ANAESTHESIA
     Dosage: UNK
     Dates: start: 20180613

REACTIONS (7)
  - Blood pressure systolic decreased [Unknown]
  - Hypersensitivity [Unknown]
  - Carbon dioxide decreased [Unknown]
  - Anaphylactic shock [Unknown]
  - Eyelid oedema [Unknown]
  - Bronchospasm [Unknown]
  - Localised oedema [Unknown]

NARRATIVE: CASE EVENT DATE: 20180613
